FAERS Safety Report 15867095 (Version 1)
Quarter: 2019Q1

REPORT INFORMATION
  Report Type: Spontaneous
  Country: US (occurrence: US)
  Receive Date: 20190125
  Receipt Date: 20190125
  Transmission Date: 20190417
  Serious: Yes (Other)
  Sender: FDA-Public Use
  Company Number: US-ASTRAZENECA-2019SE12752

PATIENT
  Age: 830 Month
  Sex: Female
  Weight: 86.2 kg

DRUGS (15)
  1. IBRANCE [Suspect]
     Active Substance: PALBOCICLIB
     Indication: BREAST CANCER METASTATIC
     Dosage: 100 MG
     Route: 048
  2. TAMOXIFEN [Suspect]
     Active Substance: TAMOXIFEN
     Route: 048
     Dates: start: 201412
  3. IBRANCE [Suspect]
     Active Substance: PALBOCICLIB
     Indication: BREAST CANCER METASTATIC
     Dosage: 125 MG FOR FIRST MONTH
     Route: 048
     Dates: start: 201702
  4. CIPRO [Concomitant]
     Active Substance: CIPROFLOXACIN HYDROCHLORIDE
     Indication: URINARY TRACT INFECTION
  5. OXYCODONE [Concomitant]
     Active Substance: OXYCODONE
     Indication: PAIN
     Dosage: TAKE 1 TABLET BY MOUTH EVERY 4 HOURS AS NEEDED
     Route: 048
  6. TURMERIC CURCUMIN [Concomitant]
     Active Substance: HERBALS\TURMERIC
     Dosage: TAKE 825 MG BY MOUTH
     Route: 048
  7. ZINC. [Concomitant]
     Active Substance: ZINC
     Route: 048
  8. VITAMIN D3 [Concomitant]
     Active Substance: CHOLECALCIFEROL
     Indication: VITAMIN D DEFICIENCY
     Dosage: TAKE 5000 UNITS BY MOUTH DAILY
     Route: 048
  9. VITAMIN C [Concomitant]
     Active Substance: ASCORBIC ACID
     Dosage: TAKE 1000 MG BY MOUTH
     Route: 048
  10. SELENIUM [Concomitant]
     Active Substance: SELENIUM
     Route: 048
  11. VITAMINS NOS [Concomitant]
     Active Substance: VITAMINS
     Route: 048
  12. LANTUS [Concomitant]
     Active Substance: INSULIN GLARGINE
     Dosage: STARTED TAKING SINGLE DOSE DAILY; 10 TO 25 UNITS DEPENDING ON BLOOD SUGAR READINGS
     Route: 058
     Dates: start: 2001
  13. CYANOCOBALAMIN. [Concomitant]
     Active Substance: CYANOCOBALAMIN
     Route: 048
  14. VITAMIN B-6 [Concomitant]
     Active Substance: PYRIDOXINE
     Route: 048
  15. FASLODEX [Suspect]
     Active Substance: FULVESTRANT
     Route: 030
     Dates: start: 201702

REACTIONS (15)
  - Blood glucose increased [Unknown]
  - White blood cell count decreased [Unknown]
  - Weight increased [Unknown]
  - Metastases to liver [Unknown]
  - Red blood cell count decreased [Unknown]
  - Tumour marker increased [Unknown]
  - Thyroid cancer [Unknown]
  - Oedema peripheral [Unknown]
  - Alopecia [Unknown]
  - Kyphosis [Unknown]
  - Fatigue [Recovering/Resolving]
  - Pain [Unknown]
  - Peripheral venous disease [Unknown]
  - Lymphoedema [Unknown]
  - Urinary tract infection [Unknown]

NARRATIVE: CASE EVENT DATE: 201701
